FAERS Safety Report 8089974-8 (Version None)
Quarter: 2012Q1

REPORT INFORMATION
  Report Type: 
  Country: None (occurrence: None)
  Receive Date: 20120129
  Receipt Date: 20110922
  Transmission Date: 20120608
  Serious: No
  Sender: FDA-Public Use
  Company Number: US-ABBOTT-11P-163-0857256-00

PATIENT
  Age: 53 Year
  Sex: Female

DRUGS (21)
  1. ZANTAC [Concomitant]
     Indication: PROPHYLAXIS
     Dosage: 150 MG - 1 TABLET BID
  2. ULTRAM [Concomitant]
     Indication: ANKYLOSING SPONDYLITIS
  3. FOLIC ACID [Concomitant]
     Indication: RHEUMATOID ARTHRITIS
     Dosage: 1 MG - DAILY
  4. MULTIVITAMIN [Concomitant]
     Indication: VITAMIN SUPPLEMENTATION
     Dosage: DAILY
  5. FLONASE [Concomitant]
     Indication: PRODUCT USED FOR UNKNOWN INDICATION
     Dosage: 2 PUFFS PER NOSTRIL DAILY
     Route: 045
  6. INDOCIN [Concomitant]
     Indication: ANKYLOSING SPONDYLITIS
  7. ISOFLURANE [Concomitant]
     Indication: HOT FLUSH
     Dosage: OVER THE COUNTER
  8. ARAVA [Concomitant]
     Indication: ANKYLOSING SPONDYLITIS
  9. ACETAMINOPHEN [Concomitant]
     Indication: ANKYLOSING SPONDYLITIS
  10. HUMIRA [Suspect]
     Indication: RHEUMATOID ARTHRITIS
     Dates: start: 20110921
  11. ARAVA [Concomitant]
     Indication: RHEUMATOID ARTHRITIS
     Dosage: 20 MG - DAILY
  12. ACETAMINOPHEN [Concomitant]
     Indication: RHEUMATOID ARTHRITIS
     Dosage: OTC - 500 MG - AS NEEDED
  13. INDOCIN [Concomitant]
     Indication: RHEUMATOID ARTHRITIS
     Dosage: 75 MG - 1 TABLET BID
  14. VIVELLE-DOT [Concomitant]
     Indication: HORMONE REPLACEMENT THERAPY
     Dosage: ONE PATCH - BID WEEKLY
  15. NEURONTIN [Concomitant]
     Indication: RHEUMATOID ARTHRITIS
  16. NEURONTIN [Concomitant]
     Indication: ANKYLOSING SPONDYLITIS
  17. ZOCOR [Concomitant]
     Indication: BLOOD CHOLESTEROL INCREASED
  18. ULTRAM [Concomitant]
     Indication: RHEUMATOID ARTHRITIS
     Dosage: 50 MG -  2 TABLETS TID
  19. FOLIC ACID [Concomitant]
     Indication: ANKYLOSING SPONDYLITIS
  20. PRINIVIL [Concomitant]
     Indication: HYPERTENSION
     Dosage: 5 MG - DAILY
  21. CALCIUM [Concomitant]
     Indication: VITAMIN SUPPLEMENTATION
     Dosage: 600 MG  - DAILY

REACTIONS (2)
  - MYALGIA [None]
  - MUSCULOSKELETAL STIFFNESS [None]
